FAERS Safety Report 6146781-0 (Version None)
Quarter: 2009Q2

REPORT INFORMATION
  Report Type: 
  Country: None (occurrence: None)
  Receive Date: 20090407
  Receipt Date: 20090407
  Transmission Date: 20091009
  Serious: Yes (Life-Threatening)
  Sender: FDA-Public Use
  Company Number: US-ROXANE LABORATORIES, INC.-2009-RO-00347RO

PATIENT
  Age: 17 Year
  Sex: Male

DRUGS (2)
  1. METHADONE [Suspect]
     Indication: WRONG DRUG ADMINISTERED
     Dosage: 50MG
  2. METHYLPHENIDATE HCL [Concomitant]
     Dosage: 20MG

REACTIONS (2)
  - RESPIRATORY ARREST [None]
  - WRONG DRUG ADMINISTERED [None]
